FAERS Safety Report 15892814 (Version 1)
Quarter: 2019Q1

REPORT INFORMATION
  Report Type: Spontaneous
  Country: AT (occurrence: AT)
  Receive Date: 20190130
  Receipt Date: 20190130
  Transmission Date: 20190417
  Serious: No
  Sender: FDA-Public Use
  Company Number: AT-IPSEN-CABO-18017356

PATIENT
  Age: 60 Year
  Sex: Female

DRUGS (1)
  1. CABOMETYX [Suspect]
     Active Substance: CABOZANTINIB S-MALATE
     Indication: RENAL CELL CARCINOMA
     Dosage: 60 MG, UNK
     Dates: start: 20181107

REACTIONS (1)
  - Vulval disorder [Unknown]

NARRATIVE: CASE EVENT DATE: 201811
